FAERS Safety Report 6294501-1 (Version None)
Quarter: 2009Q3

REPORT INFORMATION
  Report Type: 
  Country: None (occurrence: None)
  Receive Date: 20090803
  Receipt Date: 20090616
  Transmission Date: 20100115
  Serious: Yes (Other)
  Sender: FDA-Public Use
  Company Number: BR-PFIZER INC-2009228762

PATIENT
  Age: 66 Year

DRUGS (1)
  1. LIPITOR [Suspect]
     Indication: BLOOD CHOLESTEROL
     Dosage: 20 MG, 1X/DAY
     Dates: start: 20080101

REACTIONS (2)
  - BLOOD PRESSURE FLUCTUATION [None]
  - CARDIOVASCULAR DISORDER [None]
